FAERS Safety Report 9474731 (Version 1)
Quarter: 2013Q3

REPORT INFORMATION
  Report Type: Spontaneous
  Country: US (occurrence: US)
  Receive Date: 20130823
  Receipt Date: 20130823
  Transmission Date: 20140515
  Serious: No
  Sender: FDA-Public Use
  Company Number: US-009507513-1308USA006774

PATIENT
  Age: 23 Year
  Sex: Female

DRUGS (1)
  1. NEXPLANON [Suspect]
     Indication: MENSTRUATION IRREGULAR
     Dosage: UNK
     Route: 059
     Dates: start: 20130724

REACTIONS (1)
  - Implant site rash [Recovering/Resolving]
